FAERS Safety Report 9289833 (Version 1)
Quarter: 2013Q2

REPORT INFORMATION
  Report Type: Spontaneous
  Country: US (occurrence: US)
  Receive Date: 20130515
  Receipt Date: 20130515
  Transmission Date: 20140414
  Serious: No
  Sender: FDA-Public Use
  Company Number: US-BIOGENIDEC-2013BI041707

PATIENT
  Sex: Male

DRUGS (1)
  1. AVONEX [Suspect]
     Indication: MULTIPLE SCLEROSIS
     Route: 030
     Dates: start: 20080910, end: 20081101

REACTIONS (4)
  - Tremor [Recovered/Resolved]
  - Gait disturbance [Recovered/Resolved]
  - Urinary retention [Recovered/Resolved]
  - Influenza like illness [Recovered/Resolved]
